FAERS Safety Report 6451003-7 (Version None)
Quarter: 2009Q4

REPORT INFORMATION
  Report Type: 
  Country: None (occurrence: None)
  Receive Date: 20091123
  Receipt Date: 20091117
  Transmission Date: 20100525
  Serious: Yes (Hospitalization)
  Sender: FDA-Public Use
  Company Number: B0605026A

PATIENT
  Age: 31 Year
  Sex: Female

DRUGS (2)
  1. BECOTIDE [Suspect]
     Indication: ASTHMA
     Dosage: 6PUFF PER DAY
     Route: 065
  2. VENTOLIN [Suspect]
     Indication: ASTHMA
     Dosage: 6PUFF PER DAY
     Route: 065

REACTIONS (4)
  - ASTHMATIC CRISIS [None]
  - GLYCOSURIA [None]
  - HYPERGLYCAEMIA [None]
  - LACTIC ACIDOSIS [None]
